FAERS Safety Report 9523375 (Version 1)
Quarter: 2013Q1

REPORT INFORMATION
  Report Type: Spontaneous
  Country: US (occurrence: None)
  Receive Date: 20130305
  Receipt Date: 20130305
  Transmission Date: 20140127
  Serious: Yes (Other)
  Sender: FDA-Public Use
  Company Number: 163-21880-12012542

PATIENT
  Age: 55 Year
  Sex: Female

DRUGS (5)
  1. REVLIMID ( LENALIDOMIDE) ( 10 MILLIGRAM, CAPSULES) [Suspect]
     Indication: PLASMA CELL MYELOMA
     Dosage: 10 MG, 1 IN 1 D, PO
     Route: 048
     Dates: start: 201105, end: 20111222
  2. ZITHROMAX ( AZITHROMYCIN) (UNKNOWN) [Concomitant]
  3. AREDIA (PAMIDRONATE DISODIUM) (UNKNOWN) [Concomitant]
  4. VICODIN (VICODIN) (UNKNOWN) [Concomitant]
  5. ZOVIRAX (ACICLOVIR) [Concomitant]

REACTIONS (2)
  - Neutrophil count decreased [None]
  - Upper respiratory tract infection [None]
